FAERS Safety Report 8920858 (Version 6)
Quarter: 2014Q1

REPORT INFORMATION
  Report Type: Report from Study
  Country: JP (occurrence: JP)
  Receive Date: 20121121
  Receipt Date: 20140305
  Transmission Date: 20141002
  Serious: Yes (Hospitalization)
  Sender: FDA-Public Use
  Company Number: JP-VERTEX PHARMACEUTICAL INC.-AE-2012-010719

PATIENT
  Age: 70 Year
  Sex: Female

DRUGS (20)
  1. VX-950 (TELAPREVIR) [Suspect]
     Indication: CHRONIC HEPATITIS C
     Dosage: 1500 MG, QD
     Route: 048
     Dates: start: 20120516, end: 20120808
  2. REBETOL [Suspect]
     Indication: CHRONIC HEPATITIS C
     Dosage: 800 MG, QD
     Route: 048
     Dates: start: 20120516, end: 20120711
  3. REBETOL [Suspect]
     Dosage: 600 MG, QD
     Route: 048
     Dates: start: 20120712, end: 20120718
  4. REBETOL [Suspect]
     Dosage: 200 MG, QD
     Route: 048
     Dates: start: 20120719, end: 20120919
  5. REBETOL [Suspect]
     Dosage: 400 MG, QD
     Route: 048
     Dates: start: 20120920, end: 20121031
  6. PEGINTRON [Suspect]
     Indication: CHRONIC HEPATITIS C
     Dosage: 1.3 ?G/KG, QW
     Route: 058
     Dates: start: 20120516, end: 20120530
  7. PEGINTRON [Suspect]
     Dosage: 0.75 ?G/KG, QW
     Route: 058
     Dates: start: 20120607, end: 20120607
  8. PEGINTRON [Suspect]
     Dosage: 1.0 ?G/KG, QW
     Route: 058
     Dates: start: 20120614, end: 20121025
  9. MERISLON [Concomitant]
     Dosage: 24 MG, QD
     Route: 048
  10. MERISLON [Concomitant]
     Dosage: 24 MG, PRN
     Route: 048
  11. GLUFAST [Concomitant]
     Dosage: 30 MG, QD
     Route: 048
     Dates: end: 20120517
  12. GLUFAST [Concomitant]
     Dosage: 15 MG, QD
     Route: 048
     Dates: start: 20120517
  13. GLUFAST [Concomitant]
     Dosage: 5 MG, QD
     Route: 048
  14. CALBLOCK [Concomitant]
     Dosage: 8 MG, QD
     Route: 048
  15. CALBLOCK [Concomitant]
     Dosage: 8 MG, QD
     Route: 048
  16. TAKEPRON [Concomitant]
     Dosage: 15 MG, QD
     Route: 048
     Dates: start: 20120516
  17. METHADERM [Concomitant]
     Dosage: UNK, PRN
     Route: 062
     Dates: start: 20120518, end: 20121129
  18. HIRUDOID [Concomitant]
     Dosage: UNK, PRN
     Route: 062
     Dates: start: 20120518, end: 20121129
  19. LOCOID [Concomitant]
     Dosage: UNK, PRN
     Route: 061
     Dates: start: 20120607, end: 20120621
  20. LOXONIN [Concomitant]
     Dosage: 60 MG, PRN
     Route: 048
     Dates: start: 20120516, end: 20121129

REACTIONS (2)
  - Decreased appetite [Recovered/Resolved]
  - Malaise [Recovered/Resolved]
